FAERS Safety Report 7638499-X (Version None)
Quarter: 2011Q3

REPORT INFORMATION
  Report Type: 
  Country: None (occurrence: None)
  Receive Date: 20110727
  Receipt Date: 20110712
  Transmission Date: 20111222
  Serious: Yes (Other)
  Sender: FDA-Public Use
  Company Number: PHHY2011JP63328

PATIENT
  Age: 75 Year
  Sex: Female

DRUGS (5)
  1. CADUET [Suspect]
     Indication: HYPERTENSION
     Route: 048
     Dates: start: 20110111, end: 20110706
  2. LYRICA [Concomitant]
     Dosage: 25 MG, UNK
     Route: 048
     Dates: start: 20110621, end: 20110705
  3. RASILEZ [Suspect]
     Indication: HYPERTENSION
     Dosage: 150 MG, BID
     Route: 048
     Dates: start: 20110222, end: 20110630
  4. DIOVAN HCT [Suspect]
     Indication: HYPERTENSION
     Dosage: 1 DF DAILY
     Route: 048
     Dates: start: 20110118, end: 20110705
  5. DIOVAN [Suspect]
     Indication: HYPERTENSION
     Dosage: 80 MG DAILY
     Route: 048
     Dates: start: 20110705, end: 20110706

REACTIONS (9)
  - FEELING ABNORMAL [None]
  - RENAL IMPAIRMENT [None]
  - DEHYDRATION [None]
  - RENAL FAILURE ACUTE [None]
  - SENSATION OF HEAVINESS [None]
  - NAUSEA [None]
  - HYPOTENSION [None]
  - DIZZINESS [None]
  - DECREASED APPETITE [None]
